FAERS Safety Report 4517143-4 (Version None)
Quarter: 2004Q4

REPORT INFORMATION
  Report Type: 
  Country: None (occurrence: None)
  Receive Date: 20041005
  Receipt Date: 20040603
  Transmission Date: 20050328
  Serious: Yes (Other)
  Sender: FDA-Public Use
  Company Number: PHEH2004US06138

PATIENT
  Sex: Female

DRUGS (4)
  1. ESTALIS COMBIPATCH (NORETHISTERONE ACETATE, ESTRADIOL)TRANS-THERAPEUTI [Suspect]
     Dosage: TRANSDERMAL
     Route: 062
     Dates: start: 19970501, end: 19990501
  2. PREMARIN [Concomitant]
  3. PROVERA [Concomitant]
  4. PREMPRO [Concomitant]

REACTIONS (1)
  - BREAST CANCER [None]
